FAERS Safety Report 7290263-X (Version None)
Quarter: 2011Q1

REPORT INFORMATION
  Report Type: 
  Country: None (occurrence: None)
  Receive Date: 20110209
  Receipt Date: 20110209
  Transmission Date: 20110831
  Serious: Yes (Life-Threatening, Hospitalization, Other)
  Sender: FDA-Public Use
  Company Number: None

PATIENT
  Sex: Female
  Weight: 73.9363 kg

DRUGS (2)
  1. DARVOCET-N 100 [Suspect]
     Indication: RHEUMATOID ARTHRITIS
     Dosage: 1-3 A DAY APP 4-7 YRS
  2. DARVOCET-N 100 [Suspect]
     Indication: OSTEOARTHRITIS
     Dosage: 1-3 A DAY APP 4-7 YRS

REACTIONS (2)
  - PRODUCT QUALITY ISSUE [None]
  - CEREBROVASCULAR ACCIDENT [None]
